FAERS Safety Report 21926979 (Version 1)
Quarter: 2023Q1

REPORT INFORMATION
  Report Type: Spontaneous
  Country: US (occurrence: None)
  Receive Date: 20230128
  Receipt Date: 20230128
  Transmission Date: 20230418
  Serious: No
  Sender: FDA-Public Use
  Company Number: None

PATIENT
  Age: 75 Year
  Sex: Female
  Weight: 91.35 kg

DRUGS (14)
  1. WIXELA INHUB [Suspect]
     Active Substance: FLUTICASONE PROPIONATE\SALMETEROL XINAFOATE
     Indication: Asthma
     Dosage: OTHER QUANTITY : 1 INHALATION(S);?FREQUENCY : TWICE A DAY;?
     Route: 055
  2. LISINOPRIL [Concomitant]
     Active Substance: LISINOPRIL
  3. ALBUTEROL [Concomitant]
     Active Substance: ALBUTEROL
  4. avostatin [Concomitant]
  5. methotrexate injections [Concomitant]
  6. CLOBETASOL [Concomitant]
     Active Substance: CLOBETASOL
  7. WIXELA INHUB [Concomitant]
     Active Substance: FLUTICASONE PROPIONATE\SALMETEROL XINAFOATE
  8. FOLATE SODIUM [Concomitant]
     Active Substance: FOLATE SODIUM
  9. TYLENOL [Concomitant]
     Active Substance: ACETAMINOPHEN
  10. MUCINEX [Concomitant]
     Active Substance: GUAIFENESIN
  11. COUGH SYRUP [Concomitant]
     Active Substance: DEXTROMETHORPHAN HYDROBROMIDE\GUAIFENESIN
  12. VITAMIN D3 [Concomitant]
     Active Substance: CHOLECALCIFEROL
  13. collagen supplement [Concomitant]
  14. GLUCOSAMINE [Concomitant]
     Active Substance: GLUCOSAMINE

REACTIONS (5)
  - Instillation site foreign body sensation [None]
  - Cough [None]
  - Administration site irritation [None]
  - Administration site discomfort [None]
  - Asthma [None]

NARRATIVE: CASE EVENT DATE: 20221231
